FAERS Safety Report 18848714 (Version 4)
Quarter: 2021Q2

REPORT INFORMATION
  Report Type: Spontaneous
  Country: PR (occurrence: PR)
  Receive Date: 20210204
  Receipt Date: 20210629
  Transmission Date: 20210717
  Serious: Yes (Hospitalization, Other)
  Sender: FDA-Public Use
  Company Number: PR-BAYER-2021-048123

PATIENT
  Age: 78 Year
  Sex: Female

DRUGS (2)
  1. NEXAVAR [Suspect]
     Active Substance: SORAFENIB
     Indication: HEPATOCELLULAR CARCINOMA
     Dosage: 400 MG, BID
     Route: 048
     Dates: start: 20201231, end: 202101
  2. NEXAVAR [Suspect]
     Active Substance: SORAFENIB
     Indication: HEPATOCELLULAR CARCINOMA
     Dosage: 200 MG, BID
     Dates: start: 202101, end: 20210621

REACTIONS (7)
  - Myocardial infarction [Recovered/Resolved]
  - Asthenia [Not Recovered/Not Resolved]
  - Myalgia [Unknown]
  - Alopecia [Unknown]
  - Diarrhoea [Recovered/Resolved]
  - Surgery [Recovered/Resolved]
  - Abdominal discomfort [Unknown]

NARRATIVE: CASE EVENT DATE: 20210122
